FAERS Safety Report 11690017 (Version 1)
Quarter: 2015Q4

REPORT INFORMATION
  Report Type: Spontaneous
  Country: US (occurrence: US)
  Receive Date: 20151102
  Receipt Date: 20151102
  Transmission Date: 20160304
  Serious: No
  Sender: FDA-Public Use
  Company Number: US-WATSON-2015-05199

PATIENT
  Sex: Male

DRUGS (1)
  1. RAPAFLO [Suspect]
     Active Substance: SILODOSIN
     Indication: PRODUCT USED FOR UNKNOWN INDICATION
     Dosage: UNK, UNKNOWN
     Route: 065

REACTIONS (1)
  - Chest pain [Unknown]
